FAERS Safety Report 8406759-0 (Version None)
Quarter: 2012Q2

REPORT INFORMATION
  Report Type: 
  Country: None (occurrence: None)
  Receive Date: 20120604
  Receipt Date: 20120525
  Transmission Date: 20120825
  Serious: Yes (Hospitalization)
  Sender: FDA-Public Use
  Company Number: US-UCBSA-029759

PATIENT
  Age: 53 Year
  Sex: Female
  Weight: 68 kg

DRUGS (10)
  1. CIMZIA [Suspect]
     Indication: CROHN'S DISEASE
     Route: 058
     Dates: start: 20100930
  2. LEVOXYL [Concomitant]
     Dosage: 75 MCG TABLET
     Route: 048
     Dates: start: 20100820, end: 20110216
  3. LEXAPRO [Concomitant]
     Route: 048
  4. PHENERGAN [Concomitant]
     Indication: NAUSEA
     Dosage: ONE TABLET EVERY 4-6 HOURS AS NEEDED
     Route: 048
     Dates: start: 20071005
  5. HUMIRA [Concomitant]
  6. CYANOCOBALAMIN [Concomitant]
     Dosage: 1 ML INTO  30 ML MUSCLE
     Dates: start: 20100120
  7. PROTONIX [Concomitant]
     Route: 048
     Dates: start: 20100129
  8. WELLBUTRINE [Concomitant]
     Route: 048
     Dates: end: 20110303
  9. IBUPROFEN (ADVIL) [Concomitant]
     Route: 048
  10. AMBIEN [Concomitant]
     Route: 048

REACTIONS (2)
  - PNEUMONIA [None]
  - ABDOMINAL ABSCESS [None]
